FAERS Safety Report 11648580 (Version 1)
Quarter: 2015Q4

REPORT INFORMATION
  Report Type: Spontaneous
  Country: US (occurrence: US)
  Receive Date: 20151021
  Receipt Date: 20151021
  Transmission Date: 20160304
  Serious: Yes (Other)
  Sender: FDA-Public Use
  Company Number: US-NAPPMUNDI-USA-2014-0116024

PATIENT
  Age: 39 Year
  Sex: Female
  Weight: 54 kg

DRUGS (4)
  1. LETAIRIS [Suspect]
     Active Substance: AMBRISENTAN
     Indication: PRODUCT USED FOR UNKNOWN INDICATION
     Dosage: 10 UNK, QID
     Route: 065
     Dates: start: 20100916
  2. REVATIO [Concomitant]
     Active Substance: SILDENAFIL CITRATE
     Indication: PRODUCT USED FOR UNKNOWN INDICATION
  3. OXYCONTIN [Suspect]
     Active Substance: OXYCODONE HYDROCHLORIDE
     Indication: INFUSION SITE PAIN
     Route: 048
  4. REMODULIN [Suspect]
     Active Substance: TREPROSTINIL
     Indication: PULMONARY ARTERIAL HYPERTENSION
     Dosage: 0.051 MCG/KG, UNK
     Route: 065
     Dates: start: 20131105

REACTIONS (14)
  - Vomiting [Not Recovered/Not Resolved]
  - Infusion site pain [Unknown]
  - Headache [Recovering/Resolving]
  - Asthenia [Recovering/Resolving]
  - Infusion site rash [Unknown]
  - Drug hypersensitivity [Unknown]
  - Palpitations [Recovering/Resolving]
  - Infusion site swelling [Unknown]
  - Oedema [Unknown]
  - Nausea [Not Recovered/Not Resolved]
  - Haematemesis [Unknown]
  - Infusion site erythema [Unknown]
  - Pruritus [Unknown]
  - Infusion site pruritus [Unknown]

NARRATIVE: CASE EVENT DATE: 20140715
